FAERS Safety Report 11045747 (Version 1)
Quarter: 2015Q2

REPORT INFORMATION
  Report Type: Spontaneous
  Country: DE (occurrence: DE)
  Receive Date: 20150417
  Receipt Date: 20150417
  Transmission Date: 20150821
  Serious: Yes (Death, Other)
  Sender: FDA-Public Use
  Company Number: PHHY2015DE045546

PATIENT
  Sex: Male

DRUGS (1)
  1. ILARIS [Suspect]
     Active Substance: CANAKINUMAB
     Indication: SCHNITZLER^S SYNDROME
     Route: 065

REACTIONS (4)
  - Leukocytosis [Unknown]
  - Pericardial effusion [Unknown]
  - Product use issue [Unknown]
  - Death [Fatal]

NARRATIVE: CASE EVENT DATE: 2011
